FAERS Safety Report 7937576-3 (Version None)
Quarter: 2011Q4

REPORT INFORMATION
  Report Type: 
  Country: None (occurrence: None)
  Receive Date: 20111123
  Receipt Date: 20111117
  Transmission Date: 20120403
  Serious: Yes (Other)
  Sender: FDA-Public Use
  Company Number: US-B.I. PHARMACEUTICALS,INC./RIDGEFIELD-2011-BP-26473BP

PATIENT
  Sex: Male

DRUGS (7)
  1. OMEPRAZOLE [Concomitant]
     Indication: GASTROOESOPHAGEAL REFLUX DISEASE
  2. AGGRENOX [Suspect]
     Indication: CEREBROVASCULAR ACCIDENT PROPHYLAXIS
     Dosage: 25MG/200MG BID
     Route: 048
     Dates: start: 20111114, end: 20111116
  3. M.V.I. [Concomitant]
  4. LISINOPRIL [Concomitant]
     Indication: HYPERTENSION
     Dates: start: 20110701
  5. SIMVASTATIN [Concomitant]
     Indication: BLOOD CHOLESTEROL INCREASED
     Dates: start: 20110601
  6. VITAMIN D [Concomitant]
  7. HUMULIN 70/30 [Concomitant]
     Indication: TYPE 1 DIABETES MELLITUS

REACTIONS (4)
  - BLOOD PRESSURE INCREASED [None]
  - ANXIETY [None]
  - INSOMNIA [None]
  - HEADACHE [None]
